FAERS Safety Report 7880182-X (Version None)
Quarter: 2011Q4

REPORT INFORMATION
  Report Type: 
  Country: None (occurrence: None)
  Receive Date: 20111101
  Receipt Date: 20111028
  Transmission Date: 20120403
  Serious: No
  Sender: FDA-Public Use
  Company Number: US-PFIZER INC-2011264249

PATIENT

DRUGS (1)
  1. CHANTIX [Suspect]
     Dosage: UNK
     Dates: start: 20110912, end: 20110922

REACTIONS (4)
  - GASTROINTESTINAL DISORDER [None]
  - NIGHTMARE [None]
  - MALAISE [None]
  - ABDOMINAL DISCOMFORT [None]
